FAERS Safety Report 5860108-0 (Version None)
Quarter: 2008Q3

REPORT INFORMATION
  Report Type: 
  Country: None (occurrence: None)
  Receive Date: 20080827
  Receipt Date: 20080821
  Transmission Date: 20090109
  Serious: Yes (Other)
  Sender: FDA-Public Use
  Company Number: GB-PFIZER INC-2008064818

PATIENT
  Age: 42 Year
  Sex: Male

DRUGS (4)
  1. XALATAN [Suspect]
     Indication: INTRAOCULAR PRESSURE TEST ABNORMAL
     Route: 047
     Dates: start: 20080701, end: 20080705
  2. BECLOMETHASONE DIPROPIONATE [Concomitant]
     Route: 055
  3. SALBUTAMOL [Concomitant]
     Route: 055
  4. SALMETEROL [Concomitant]
     Route: 055

REACTIONS (4)
  - ABNORMAL SENSATION IN EYE [None]
  - ARTHRALGIA [None]
  - EYE IRRITATION [None]
  - EYE SWELLING [None]
